FAERS Safety Report 16124149 (Version 1)
Quarter: 2019Q2

REPORT INFORMATION
  Report Type: Spontaneous
  Country: None (occurrence: US)
  Receive Date: 20190327
  Receipt Date: 20190327
  Transmission Date: 20190711
  Serious: No
  Sender: FDA-Public Use
  Company Number: US-IBSA PHARMA-TIR-2018-1193

PATIENT
  Sex: Male

DRUGS (2)
  1. TIROSINT [Suspect]
     Active Substance: LEVOTHYROXINE SODIUM
     Indication: PRODUCT USED FOR UNKNOWN INDICATION
     Dosage: 100MCG DAILY
     Route: 048
     Dates: end: 2018
  2. TIROSINT [Suspect]
     Active Substance: LEVOTHYROXINE SODIUM
     Dosage: 100MCG TWICE DAILY
     Route: 048
     Dates: start: 2018

REACTIONS (2)
  - No adverse event [Unknown]
  - Drug level below therapeutic [Unknown]

NARRATIVE: CASE EVENT DATE: 2018
